FAERS Safety Report 7890327-3 (Version None)
Quarter: 2011Q4

REPORT INFORMATION
  Report Type: 
  Country: None (occurrence: None)
  Receive Date: 20111103
  Receipt Date: 20110805
  Transmission Date: 20120403
  Serious: No
  Sender: FDA-Public Use
  Company Number: US-AMGEN-USASP2011039892

PATIENT
  Sex: Female

DRUGS (11)
  1. ENBREL [Suspect]
     Indication: PRODUCT USED FOR UNKNOWN INDICATION
     Dosage: 50 MG, QWK
  2. PHENYTOIN [Concomitant]
  3. LEVOTHYROXINE SODIUM [Concomitant]
  4. VITAMIN D [Concomitant]
  5. SERTRALINE HYDROCHLORIDE [Concomitant]
  6. FOLIC ACID [Concomitant]
  7. CALCIUM PLUS VITAMIN D3 [Concomitant]
  8. SIMVASTATIN [Concomitant]
  9. VITAMIN B12                        /00056201/ [Concomitant]
  10. EYEVITE [Concomitant]
  11. METHOTREXATE [Concomitant]

REACTIONS (1)
  - HAEMORRHAGE [None]
